FAERS Safety Report 18018876 (Version 1)
Quarter: 2020Q3

REPORT INFORMATION
  Report Type: Spontaneous
  Country: CA (occurrence: CA)
  Receive Date: 20200714
  Receipt Date: 20200714
  Transmission Date: 20201103
  Serious: Yes (Hospitalization, Other)
  Sender: FDA-Public Use
  Company Number: CA-AUROBINDO-AUR-APL-2020-034145

PATIENT
  Age: 45 Year
  Sex: Female

DRUGS (9)
  1. AIMOVIG [Suspect]
     Active Substance: ERENUMAB-AOOE
     Dosage: 140 MILLIGRAM
     Route: 065
  2. BRIVLERA [Concomitant]
     Active Substance: BRIVARACETAM
     Indication: PRODUCT USED FOR UNKNOWN INDICATION
     Dosage: 100 MILLIGRAM, TWO TIMES A DAY
     Route: 065
  3. LAMOTRIGINE. [Concomitant]
     Active Substance: LAMOTRIGINE
     Indication: PRODUCT USED FOR UNKNOWN INDICATION
     Dosage: UNK
     Route: 065
  4. AIMOVIG [Suspect]
     Active Substance: ERENUMAB-AOOE
     Indication: MIGRAINE
     Dosage: 70 MILLIGRAM
     Route: 065
  5. CITALOPRAM [Suspect]
     Active Substance: CITALOPRAM HYDROBROMIDE
     Indication: MIGRAINE
     Dosage: 40 MILLIGRAM
     Route: 065
  6. TOPIRAMATE TABLET [Suspect]
     Active Substance: TOPIRAMATE
     Indication: MIGRAINE
     Dosage: 150 MILLIGRAM
     Route: 065
  7. TOPIRAMATE. [Suspect]
     Active Substance: TOPIRAMATE
     Indication: MIGRAINE
     Dosage: 50 MILLIGRAM, ONCE A DAY
     Route: 065
  8. CLOBAZAM. [Concomitant]
     Active Substance: CLOBAZAM
     Indication: PRODUCT USED FOR UNKNOWN INDICATION
     Dosage: 10 MILLIGRAM
     Route: 065
  9. LAMOTRIGINE. [Concomitant]
     Active Substance: LAMOTRIGINE
     Indication: PRODUCT USED FOR UNKNOWN INDICATION
     Dosage: 200 MILLIGRAM, ONCE A DAY
     Route: 065

REACTIONS (16)
  - Generalised tonic-clonic seizure [Unknown]
  - Dizziness [Unknown]
  - Drug dependence [Unknown]
  - Balance disorder [Unknown]
  - Concussion [Unknown]
  - Decreased nasolabial fold [Unknown]
  - Head injury [Unknown]
  - Product dose omission issue [Unknown]
  - Amnesia [Unknown]
  - Seizure [Unknown]
  - Petit mal epilepsy [Unknown]
  - Off label use [Unknown]
  - Blood pressure abnormal [Unknown]
  - Migraine [Unknown]
  - Epilepsy [Unknown]
  - Headache [Unknown]
